FAERS Safety Report 9082092 (Version 1)
Quarter: 2013Q1

REPORT INFORMATION
  Report Type: Report from Study
  Country: US (occurrence: US)
  Receive Date: 20130130
  Receipt Date: 20130130
  Transmission Date: 20140127
  Serious: No
  Sender: FDA-Public Use
  Company Number: US-ABBOTT-12P-163-0978876-00

PATIENT
  Age: 43 Year
  Sex: Female

DRUGS (14)
  1. HUMIRA [Suspect]
     Indication: PSORIATIC ARTHROPATHY
  2. HYCROCHLOROTHIAZIDE [Concomitant]
     Indication: SWELLING
  3. NAPROXEN [Concomitant]
     Indication: PSORIATIC ARTHROPATHY
  4. TRAMADOL [Concomitant]
     Indication: PSORIATIC ARTHROPATHY
  5. FERROUS SULFATE [Concomitant]
     Indication: BLOOD IRON DECREASED
  6. KLOR-CON [Concomitant]
     Indication: BLOOD POTASSIUM DECREASED
  7. PROPRANOLOL [Concomitant]
     Indication: HEART RATE INCREASED
  8. TRICOR [Concomitant]
     Indication: BLOOD CHOLESTEROL INCREASED
  9. PRILOSEC [Concomitant]
     Indication: GASTROOESOPHAGEAL REFLUX DISEASE
  10. ZOPIDEM [Concomitant]
     Indication: INSOMNIA
  11. FOLIC ACID [Concomitant]
     Indication: POLYMEDICATION
  12. TORADOL [Concomitant]
     Indication: PAIN
     Dosage: 1-2 TIMES A MONTH
  13. FLEXERIL [Concomitant]
     Indication: PSORIATIC ARTHROPATHY
  14. METHOTREXATE [Concomitant]
     Indication: PSORIATIC ARTHROPATHY

REACTIONS (2)
  - Chest pain [Not Recovered/Not Resolved]
  - Local swelling [Not Recovered/Not Resolved]
